FAERS Safety Report 10066372 (Version 5)
Quarter: 2017Q3

REPORT INFORMATION
  Report Type: Spontaneous
  Country: JP (occurrence: JP)
  Receive Date: 20140408
  Receipt Date: 20170710
  Transmission Date: 20171127
  Serious: Yes (Life-Threatening, Hospitalization, Other)
  Sender: FDA-Public Use
  Company Number: JP-BAYER-2014-050652

PATIENT
  Age: 59 Year
  Sex: Male
  Weight: 56 kg

DRUGS (11)
  1. NAUZELIN [Concomitant]
     Active Substance: DOMPERIDONE
     Indication: PROPHYLAXIS OF NAUSEA AND VOMITING
     Dosage: 10 MG, QS
     Route: 048
     Dates: start: 20140313
  2. ALMETA [Concomitant]
     Active Substance: ALCLOMETASONE DIPROPIONATE
     Indication: PROPHYLAXIS
     Dosage: UNK
     Route: 061
  3. MYSER [Concomitant]
     Active Substance: DIFLUPREDNATE
     Indication: PROPHYLAXIS
     Dosage: UNK
     Route: 061
  4. GOSHAJINKIGAN [Suspect]
     Active Substance: HERBALS
     Indication: HYPOAESTHESIA
     Dosage: 2.5 G, TID
     Route: 048
     Dates: start: 20140319, end: 20140326
  5. AMLODIN [Concomitant]
     Active Substance: AMLODIPINE BESYLATE
     Dosage: DAILY DOSE 5 MG
     Route: 048
  6. STIVARGA [Suspect]
     Active Substance: REGORAFENIB
     Indication: COLON CANCER
     Dosage: 120 MG, QD
     Route: 048
     Dates: start: 20140320, end: 20140326
  7. OLMETEC [Concomitant]
     Active Substance: OLMESARTAN MEDOXOMIL
     Dosage: DAILY DOSE 20 MG
     Route: 048
  8. STIVARGA [Suspect]
     Active Substance: REGORAFENIB
     Indication: COLON CANCER
     Dosage: 160 MG, QD ON FOR 3 WEEKS AND OFF FOR 1 WEEK
     Route: 048
     Dates: start: 20140313, end: 20140319
  9. LOPEMIN [Concomitant]
     Active Substance: LOPERAMIDE HYDROCHLORIDE
     Indication: DIARRHOEA
  10. LOPEMIN [Concomitant]
     Active Substance: LOPERAMIDE HYDROCHLORIDE
     Indication: PROPHYLAXIS AGAINST DIARRHOEA
     Dosage: 1 MG, QS
     Route: 048
     Dates: start: 20140313
  11. HIRUDOID [Concomitant]
     Active Substance: GLYCOSAMINOGLYCANS
     Indication: DRUG TOXICITY PROPHYLAXIS
     Dosage: UNK
     Route: 061

REACTIONS (5)
  - Platelet count decreased [Recovered/Resolved]
  - Rhabdomyolysis [Recovered/Resolved]
  - Diarrhoea [None]
  - Blood creatine phosphokinase increased [Recovered/Resolved]
  - Liver disorder [Not Recovered/Not Resolved]

NARRATIVE: CASE EVENT DATE: 20140319
